FAERS Safety Report 9432751 (Version 4)
Quarter: 2013Q3

REPORT INFORMATION
  Report Type: Spontaneous
  Country: JP (occurrence: JP)
  Receive Date: 20130731
  Receipt Date: 20130829
  Transmission Date: 20140515
  Serious: Yes (Death, Hospitalization, Other)
  Sender: FDA-Public Use
  Company Number: JP-BAYER-2013-089681

PATIENT
  Age: 84 Year
  Sex: Female
  Weight: 46 kg

DRUGS (9)
  1. EOB PRIMOVIST [Suspect]
     Indication: NUCLEAR MAGNETIC RESONANCE IMAGING LIVER
     Dosage: 4.6 ML, ONCE
     Route: 042
     Dates: start: 20130718, end: 20130718
  2. EOB PRIMOVIST [Suspect]
     Indication: CHRONIC HEPATITIS C
     Dosage: 4.6 ML, ONCE
     Route: 042
     Dates: start: 20130718, end: 20130718
  3. HYPEN [Suspect]
     Dosage: 400 MG, QD
     Route: 048
     Dates: start: 20130723, end: 20130724
  4. HYPEN [Suspect]
     Dosage: 400 MG, QD
     Route: 048
     Dates: start: 20130726, end: 20130726
  5. LOXONIN [Suspect]
     Indication: PAIN
     Dosage: 1 DF, QD
     Route: 048
     Dates: start: 20130722, end: 20130722
  6. LOXONIN [Suspect]
     Indication: PAIN
     Dosage: 1 DF, QD
     Route: 048
     Dates: start: 20130724, end: 20130724
  7. VOLTAREN [Suspect]
     Dosage: 25 MG, QD
     Route: 054
     Dates: start: 20130724, end: 20130725
  8. EBRANTIL [Concomitant]
     Indication: NEUROGENIC BLADDER
     Dosage: DAILY DOSE 30 MG
     Route: 048
     Dates: start: 20130430, end: 20130727
  9. EBRANTIL [Concomitant]
     Indication: DYSURIA

REACTIONS (15)
  - Oedema peripheral [Not Recovered/Not Resolved]
  - Pain in extremity [Not Recovered/Not Resolved]
  - Skin discolouration [Not Recovered/Not Resolved]
  - Skin disorder [Not Recovered/Not Resolved]
  - Limb discomfort [Not Recovered/Not Resolved]
  - Muscular weakness [Not Recovered/Not Resolved]
  - Coordination abnormal [Not Recovered/Not Resolved]
  - Muscle disorder [Not Recovered/Not Resolved]
  - Depressed level of consciousness [Fatal]
  - Cardio-respiratory arrest [Fatal]
  - Gastrointestinal haemorrhage [Fatal]
  - Faeces discoloured [Fatal]
  - Nausea [Fatal]
  - Abdominal pain [Fatal]
  - Vomiting [Fatal]
